FAERS Safety Report 5352028-5 (Version None)
Quarter: 2007Q2

REPORT INFORMATION
  Report Type: 
  Country: None (occurrence: None)
  Receive Date: 20070611
  Receipt Date: 20070529
  Transmission Date: 20071010
  Serious: Yes (Other)
  Sender: FDA-Public Use
  Company Number: PHEH2007US07228

PATIENT
  Age: 75 Year
  Sex: Female

DRUGS (4)
  1. FORTICAL [Suspect]
     Indication: OSTEOPOROSIS
     Dates: start: 20060301, end: 20070401
  2. SILDENAFIL CITRATE [Suspect]
     Indication: PULMONARY HYPERTENSION
     Dosage: 20 MG, TID
     Route: 048
     Dates: start: 20070412, end: 20070512
  3. MIACALCIN [Suspect]
     Indication: OSTEOPOROSIS
     Dosage: 200 IU, QD
     Dates: start: 20060404, end: 20070505
  4. CHANTIX [Suspect]
     Indication: SMOKING CESSATION THERAPY
     Dosage: 1 MG, BID
     Route: 048
     Dates: start: 20000507, end: 20070607

REACTIONS (3)
  - HYPERKINESIA [None]
  - MUSCLE ATROPHY [None]
  - RESTLESS LEGS SYNDROME [None]
